FAERS Safety Report 25174016 (Version 1)
Quarter: 2025Q2

REPORT INFORMATION
  Report Type: Spontaneous
  Country: US (occurrence: None)
  Receive Date: 20250408
  Receipt Date: 20250408
  Transmission Date: 20250717
  Serious: Yes (Death)
  Sender: FDA-CTU
  Company Number: None

PATIENT
  Age: 66 Year
  Sex: Female
  Weight: 65 kg

DRUGS (4)
  1. ENHERTU [Suspect]
     Active Substance: FAM-TRASTUZUMAB DERUXTECAN-NXKI
     Indication: Breast cancer
     Route: 040
     Dates: start: 20241021, end: 20250224
  2. PALONOSETRON [Concomitant]
     Active Substance: PALONOSETRON
     Dates: start: 20241021, end: 20250224
  3. DEXAMETHASONE [Concomitant]
     Active Substance: DEXAMETHASONE
     Dates: start: 20241021, end: 20250224
  4. APREPITANT [Concomitant]
     Active Substance: APREPITANT
     Dates: start: 20241021, end: 20250224

REACTIONS (3)
  - Interstitial lung disease [None]
  - Acute respiratory distress syndrome [None]
  - Diffuse alveolar damage [None]

NARRATIVE: CASE EVENT DATE: 20250224
